FAERS Safety Report 5042409-1 (Version None)
Quarter: 2006Q2

REPORT INFORMATION
  Report Type: 
  Country: None (occurrence: None)
  Receive Date: 20060627
  Receipt Date: 20060612
  Transmission Date: 20061013
  Serious: Yes (Hospitalization)
  Sender: FDA-Public Use
  Company Number: IMP_2338_2006

PATIENT
  Age: 70 Year
  Sex: Female

DRUGS (10)
  1. OXYCODONE HCL [Suspect]
     Indication: PAIN
     Dosage: 40 MG BID PO
     Route: 048
  2. OXYCODONE HCL [Suspect]
     Indication: PAIN
     Dosage: 60 MG PER24HR PO
     Route: 048
  3. FLUVOXAMINE MALEATE [Suspect]
     Dosage: 200 MG QAM PO AFEW YEARS
     Route: 048
  4. DOXEPIN [Suspect]
     Dosage: 50 MG NIGHTLY PO A FEW YEARS
     Route: 048
  5. DOXEPIN [Suspect]
     Dosage: 50 MG NIGHTLY PO
     Route: 048
  6. DICLOFENAC [Concomitant]
  7. RALOXIFENE [Concomitant]
  8. DILTIAZEM CD [Concomitant]
  9. SIMVASTATIN [Concomitant]
  10. CALCIUM CARBONATE [Concomitant]

REACTIONS (14)
  - AGITATION [None]
  - ATRIAL FIBRILLATION [None]
  - BLOOD CREATINE PHOSPHOKINASE INCREASED [None]
  - BLOOD PRESSURE DIASTOLIC DECREASED [None]
  - CHILLS [None]
  - CLONUS [None]
  - CONFUSIONAL STATE [None]
  - FALL [None]
  - HEART RATE INCREASED [None]
  - NAUSEA [None]
  - PYREXIA [None]
  - RADIUS FRACTURE [None]
  - RESTLESSNESS [None]
  - SEROTONIN SYNDROME [None]
